FAERS Safety Report 9735306 (Version 1)
Quarter: 2013Q4

REPORT INFORMATION
  Report Type: Spontaneous
  Country: IT (occurrence: None)
  Receive Date: 20131204
  Receipt Date: 20131204
  Transmission Date: 20140711
  Serious: Yes (Other)
  Sender: FDA-Public Use
  Company Number: AUR-APL-2013-10016

PATIENT
  Age: 74 Year
  Sex: Female

DRUGS (6)
  1. LEVETIRACETAM (LEVETIRACETAM) [Suspect]
     Indication: STATUS EPILEPTICUS
  2. DIAZEPAM (DIAZEPAM) [Suspect]
     Indication: STATUS EPILEPTICUS
  3. PROPOFOL (PROPOFOL) [Suspect]
     Indication: STATUS EPILEPTICUS
  4. PHENYTOIN (PHENYTOIN) [Suspect]
     Indication: STATUS EPILEPTICUS
  5. THIOPENTAL SODIUM [Suspect]
     Indication: STATUS EPILEPTICUS
     Route: 042
  6. VALPROATE [Suspect]
     Indication: STATUS EPILEPTICUS

REACTIONS (2)
  - Status epilepticus [None]
  - No therapeutic response [None]
